FAERS Safety Report 8598445-1 (Version None)
Quarter: 2012Q3

REPORT INFORMATION
  Report Type: 
  Country: None (occurrence: None)
  Receive Date: 20120816
  Receipt Date: 20120810
  Transmission Date: 20120928
  Serious: Yes (Death, Hospitalization)
  Sender: FDA-Public Use
  Company Number: KR-ROCHE-1036367

PATIENT
  Sex: Male
  Weight: 55 kg

DRUGS (65)
  1. XELODA [Suspect]
     Indication: GASTRIC CANCER
     Dosage: DATE OF MOST RECENT DOSE PRIOR TO SAE: 31/JAN/2012
     Route: 048
     Dates: start: 20111221
  2. RAMOSETRON [Concomitant]
     Indication: NAUSEA
     Route: 042
     Dates: start: 20111221, end: 20120118
  3. ARTEMISIA ASIATICA [Concomitant]
     Indication: DYSPEPSIA
     Route: 048
     Dates: start: 20120110, end: 20120201
  4. POTASSIUM PHOSPHATE, MONOBASIC [Concomitant]
     Dosage: DOSE: 0.5 AMPULE(S)
     Route: 042
     Dates: start: 20120201, end: 20120201
  5. POTASSIUM PHOSPHATE, MONOBASIC [Concomitant]
     Route: 042
     Dates: start: 20120213, end: 20120215
  6. TRAMADOL HCL [Concomitant]
     Dosage: DOSE: 1 AMPULE(S)
     Route: 042
     Dates: start: 20120215, end: 20120220
  7. ALBUMIN [Concomitant]
     Route: 042
     Dates: start: 20120211, end: 20120213
  8. PETHIDINE HCL [Concomitant]
     Indication: BRONCHOSCOPY
     Route: 042
     Dates: start: 20120207, end: 20120207
  9. PHYTONADIONE [Concomitant]
     Indication: INTERNATIONAL NORMALISED RATIO INCREASED
     Route: 042
     Dates: start: 20120213, end: 20120216
  10. TRANEXAMIC ACID [Concomitant]
     Indication: INTERNATIONAL NORMALISED RATIO INCREASED
     Dosage: DOSE: 1 AMPULE(S)
     Route: 042
     Dates: start: 20120214, end: 20120216
  11. POTASSIUM CHLORIDE [Concomitant]
     Route: 042
     Dates: start: 20120205, end: 20120206
  12. POTASSIUM PHOSPHATE, MONOBASIC [Concomitant]
     Route: 042
     Dates: start: 20120206, end: 20120207
  13. ALBUMIN [Concomitant]
     Route: 042
     Dates: start: 20120210, end: 20120210
  14. FRESH FROZEN PLASMA [Concomitant]
     Dosage: DOSE: 2 UNIT(S)
     Route: 042
     Dates: start: 20120221, end: 20120222
  15. TETRACOSACTRIN [Concomitant]
     Dosage: DOSE: 1 AMPULE(S)
     Route: 042
     Dates: start: 20120209, end: 20120209
  16. APREPITANT [Concomitant]
     Indication: NAUSEA
     Route: 048
     Dates: start: 20111221, end: 20120118
  17. DEXAMETHASONE [Concomitant]
     Indication: VOMITING
     Route: 048
     Dates: start: 20111222, end: 20120121
  18. LOPERAMIDE OXIDE [Concomitant]
     Indication: DIARRHOEA
     Route: 048
     Dates: start: 20120103, end: 20120109
  19. MEGESTROL ACETATE [Concomitant]
     Indication: DECREASED APPETITE
     Route: 048
     Dates: start: 20111222, end: 20120201
  20. POTASSIUM CHLORIDE [Concomitant]
     Indication: ELECTROLYTE IMBALANCE
     Route: 042
     Dates: start: 20120118, end: 20120118
  21. POTASSIUM CHLORIDE [Concomitant]
     Indication: HYPOKALAEMIA
     Route: 048
     Dates: start: 20120116, end: 20120123
  22. POTASSIUM PHOSPHATE, MONOBASIC [Concomitant]
     Route: 042
     Dates: start: 20120208, end: 20120208
  23. ALBUMIN [Concomitant]
     Indication: HYPOALBUMINAEMIA
     Route: 042
     Dates: start: 20120202, end: 20120202
  24. DIHYDROCODEINE BITARTRATE INJ [Concomitant]
     Indication: UPPER RESPIRATORY TRACT INFECTION
     Route: 048
     Dates: start: 20120214, end: 20120215
  25. METHYLPREDNISOLONE SODIUM SUCCINATE [Concomitant]
     Indication: ADVERSE DRUG REACTION
     Route: 042
     Dates: start: 20120211, end: 20120220
  26. RAMOSETRON [Concomitant]
     Indication: VOMITING
  27. LACTOBACILLUS ACIDOPHILUS [Concomitant]
     Indication: DIARRHOEA
     Route: 048
     Dates: start: 20120110, end: 20120201
  28. JOULIE'S SOLUTION [Concomitant]
     Indication: HYPOPHOSPHATAEMIA
     Route: 048
     Dates: start: 20120116, end: 20120123
  29. POTASSIUM PHOSPHATE, MONOBASIC [Concomitant]
     Route: 042
     Dates: start: 20120209, end: 20120209
  30. ESOMEPRAZOLE [Concomitant]
     Indication: STOMATITIS
     Route: 042
     Dates: start: 20120201, end: 20120214
  31. ESOMEPRAZOLE [Concomitant]
     Route: 042
     Dates: start: 20120222, end: 20120223
  32. RED BLOOD CELLS [Concomitant]
     Indication: ANAEMIA
     Dosage: DOSE: 4 UNITS
     Route: 042
     Dates: start: 20120221, end: 20120221
  33. HERCEPTIN [Suspect]
     Indication: GASTRIC CANCER
     Dosage: DATE OF MOST RECENT DOSE PRIOR TO SAE: 18/JAN/2012, 330 MG
     Route: 042
     Dates: start: 20111221
  34. APREPITANT [Concomitant]
     Indication: VOMITING
     Route: 048
     Dates: start: 20111222, end: 20120120
  35. CHLORPHENIRAMINE MALEATE [Concomitant]
     Indication: HYPERSENSITIVITY
     Route: 042
     Dates: start: 20111221, end: 20120118
  36. RANITIDINE [Concomitant]
     Indication: GASTRITIS
     Route: 048
     Dates: start: 20111222, end: 20120121
  37. ULTRACET [Concomitant]
     Indication: ABDOMINAL PAIN
     Route: 048
     Dates: start: 20120108, end: 20120109
  38. POTASSIUM CHLORIDE [Concomitant]
     Route: 042
     Dates: start: 20120217, end: 20120218
  39. ESOMEPRAZOLE [Concomitant]
     Route: 042
     Dates: start: 20120215, end: 20120220
  40. PETHIDINE HCL [Concomitant]
     Route: 042
     Dates: start: 20120214, end: 20120214
  41. REMIFENTANIL [Concomitant]
     Indication: PNEUMONIA FUNGAL
     Route: 042
     Dates: start: 20120220, end: 20120220
  42. PERTUZUMAB [Suspect]
     Indication: GASTRIC CANCER
     Dosage: DATE OF MOST RECENT DOSE PRIOR TO SAE: 18/JAN/2012, 840 MG
     Route: 042
     Dates: start: 20111221
  43. CISPLATIN [Suspect]
     Indication: GASTRIC CANCER
     Dosage: DATE OF MOST RECENT DOSE PRIOR TO SAE: 18/JAN/2012
     Route: 042
     Dates: start: 20111221
  44. FAMOTIDINE [Concomitant]
     Indication: DIARRHOEA
     Dosage: DOSE: 1AMPLUE(S)
     Route: 042
     Dates: start: 20120104, end: 20120104
  45. POTASSIUM PHOSPHATE, MONOBASIC [Concomitant]
     Route: 042
     Dates: start: 20120210, end: 20120211
  46. LENOGRASTIM [Concomitant]
     Indication: FEBRILE NEUTROPENIA
     Dosage: DOSE: 1 AMPULE(S)
     Route: 058
     Dates: start: 20120202, end: 20120203
  47. BISACODYL [Concomitant]
     Indication: CONSTIPATION
     Dates: start: 20120217, end: 20120217
  48. MAGNESIUM SULFATE [Concomitant]
     Indication: ELECTROLYTE IMBALANCE
     Route: 042
     Dates: start: 20120118, end: 20120118
  49. SODIUM BICARBONATE [Concomitant]
     Indication: STOMATITIS
     Route: 050
     Dates: start: 20111227, end: 20120214
  50. POTASSIUM PHOSPHATE, MONOBASIC [Concomitant]
     Route: 042
     Dates: start: 20120216, end: 20120218
  51. ESOMEPRAZOLE [Concomitant]
     Indication: UPPER GASTROINTESTINAL HAEMORRHAGE
     Route: 042
     Dates: start: 20120221, end: 20120221
  52. TRAMADOL HCL [Concomitant]
     Indication: STOMATITIS
     Dosage: DOSE: 1 AMPULE(S)
     Route: 042
     Dates: start: 20120201, end: 20120210
  53. ALBUMIN [Concomitant]
     Route: 042
     Dates: start: 20120220, end: 20120220
  54. MORPHINE HCL [Concomitant]
     Indication: STOMATITIS
     Dosage: DOSE: 0.3 AMPLUE(S)
     Route: 042
     Dates: start: 20120202, end: 20120202
  55. CHLORPHENIRAMINE MALEATE [Concomitant]
     Indication: ADVERSE DRUG REACTION
     Route: 042
     Dates: start: 20120211, end: 20120219
  56. PETHIDINE HCL [Concomitant]
     Route: 030
     Dates: start: 20120214, end: 20120214
  57. DEXAMETHASONE [Concomitant]
     Indication: NAUSEA
     Route: 042
     Dates: start: 20111221, end: 20120118
  58. POTASSIUM CHLORIDE [Concomitant]
     Route: 042
     Dates: start: 20120204, end: 20120204
  59. POTASSIUM CHLORIDE [Concomitant]
     Route: 042
     Dates: start: 20120208, end: 20120208
  60. POTASSIUM PHOSPHATE, MONOBASIC [Concomitant]
     Indication: HYPOPHOSPHATAEMIA
     Dosage: DOSE: 0.5 AMPULE(S)
     Route: 042
     Dates: start: 20120118, end: 20120119
  61. POTASSIUM PHOSPHATE, MONOBASIC [Concomitant]
     Route: 042
     Dates: start: 20120203, end: 20120205
  62. POTASSIUM PHOSPHATE, MONOBASIC [Concomitant]
     Route: 042
     Dates: start: 20120212, end: 20120212
  63. FRESH FROZEN PLASMA [Concomitant]
     Indication: INTERNATIONAL NORMALISED RATIO INCREASED
     Dosage: DOSE: 3 UNIT(S)
     Route: 042
     Dates: start: 20120214, end: 20120214
  64. KETOPROFEN [Concomitant]
     Indication: PAIN
     Route: 062
     Dates: start: 20120210, end: 20120215
  65. FENTANYL CITRATE [Concomitant]
     Indication: PNEUMONIA FUNGAL
     Dosage: DOSE: 1 AMPULE(S)
     Route: 042
     Dates: start: 20120220, end: 20120220

REACTIONS (3)
  - PNEUMONIA FUNGAL [None]
  - RENAL FAILURE ACUTE [None]
  - FATIGUE [None]
